FAERS Safety Report 7707361-6 (Version None)
Quarter: 2011Q3

REPORT INFORMATION
  Report Type: 
  Country: None (occurrence: None)
  Receive Date: 20110824
  Receipt Date: 20110823
  Transmission Date: 20111222
  Serious: Yes (Other)
  Sender: FDA-Public Use
  Company Number: US-PFIZER INC-2011195376

PATIENT
  Sex: Female

DRUGS (1)
  1. DILANTIN [Suspect]
     Dosage: 650 MG, UNK
     Dates: start: 20110701

REACTIONS (5)
  - FATIGUE [None]
  - DYSGRAPHIA [None]
  - ANTICONVULSANT DRUG LEVEL INCREASED [None]
  - AMNESIA [None]
  - BALANCE DISORDER [None]
